FAERS Safety Report 16793466 (Version 1)
Quarter: 2019Q3

REPORT INFORMATION
  Report Type: Spontaneous
  Country: GR (occurrence: GR)
  Receive Date: 20190911
  Receipt Date: 20190911
  Transmission Date: 20191005
  Serious: Yes (Death, Hospitalization)
  Sender: FDA-Public Use
  Company Number: GR-ADVANZ PHARMA-201908000230

PATIENT

DRUGS (3)
  1. PREDNISOLONE. [Suspect]
     Active Substance: PREDNISOLONE
     Indication: TEMPORAL ARTERITIS
     Dosage: 30 MG
     Route: 065
  2. BENZODIAZEPINES [Concomitant]
     Active Substance: BENZODIAZEPINE
     Indication: DELIRIUM
  3. HALOPERIDOL. [Concomitant]
     Active Substance: HALOPERIDOL
     Indication: DELIRIUM

REACTIONS (1)
  - Influenza [Fatal]
